FAERS Safety Report 18453775 (Version 1)
Quarter: 2020Q4

REPORT INFORMATION
  Report Type: Spontaneous
  Country: US (occurrence: US)
  Receive Date: 20201102
  Receipt Date: 20201102
  Transmission Date: 20210114
  Serious: Yes (Death, Other)
  Sender: FDA-Public Use
  Company Number: US-PURDUE-USA-2020-0173645

PATIENT
  Sex: Male

DRUGS (1)
  1. OXYCODONE HYDROCHLORIDE (SIMILAR TO NDA 22-272) [Suspect]
     Active Substance: OXYCODONE HYDROCHLORIDE
     Indication: CRANIOCEREBRAL INJURY
     Dosage: UNK
     Route: 048

REACTIONS (9)
  - Overdose [Unknown]
  - Disability [Unknown]
  - Anxiety [Unknown]
  - Death [Fatal]
  - Drug dependence [Unknown]
  - Cardiomegaly [Unknown]
  - Insomnia [Unknown]
  - Unevaluable event [Unknown]
  - Personality change [Unknown]

NARRATIVE: CASE EVENT DATE: 20181021
